FAERS Safety Report 16670324 (Version 1)
Quarter: 2019Q3

REPORT INFORMATION
  Report Type: Spontaneous
  Country: FR (occurrence: FR)
  Receive Date: 20190805
  Receipt Date: 20190805
  Transmission Date: 20191004
  Serious: Yes (Other)
  Sender: FDA-Public Use
  Company Number: FR-TEVA-2019-FR-1087552

PATIENT
  Age: 34 Year
  Sex: Male
  Weight: 84.5 kg

DRUGS (18)
  1. MIDAZOLAM [Concomitant]
     Active Substance: MIDAZOLAM HYDROCHLORIDE
  2. PARACETAMOL [Concomitant]
     Active Substance: ACETAMINOPHEN
  3. NORADRENALINE [Concomitant]
     Active Substance: NOREPINEPHRINE
  4. OFLOCET 1,5 MG/0,5 ML, SOLUTION AURICULAIRE EN R?CIPIENT UNIDOSE [Concomitant]
     Active Substance: OFLOXACIN
     Dosage: 1.5 MG/0.5 ML, SINGLE-DOSE CONTAINER ATRIAL SOLUTION
  5. MORPHINE [Concomitant]
     Active Substance: MORPHINE
  6. PANTOPRAZOLE [Concomitant]
     Active Substance: PANTOPRAZOLE
  7. PHOCYTAN [Concomitant]
     Active Substance: .ALPHA.-GLUCOSE-1-PHOSPHATE
  8. TRAMADOL (CHLORHYDRATE DE [Suspect]
     Active Substance: TRAMADOL HYDROCHLORIDE
     Indication: PRODUCT USED FOR UNKNOWN INDICATION
     Route: 048
  9. METHADONE [Suspect]
     Active Substance: METHADONE HYDROCHLORIDE
     Indication: DRUG DEPENDENCE
     Dosage: 80 TO 120 MG/D
     Route: 048
     Dates: end: 20190621
  10. DIAZEPAM. [Concomitant]
     Active Substance: DIAZEPAM
  11. TERCIAN [Concomitant]
     Active Substance: CYAMEMAZINE
  12. SUFENTANIL [Concomitant]
     Active Substance: SUFENTANIL
  13. COMPLEMENT ALIMENTAIRE [Concomitant]
     Active Substance: DIETARY SUPPLEMENT
  14. GLUCONATE DE CALCIUM [Concomitant]
     Active Substance: CALCIUM GLUCONATE
  15. TETANUS TOXOID ADSORBED (VACCINE) [Concomitant]
     Active Substance: CLOSTRIDIUM TETANI TOXOID ANTIGEN (FORMALDEHYDE INACTIVATED)
  16. DIPRIVAN [Concomitant]
     Active Substance: PROPOFOL
  17. LOVENOX [Concomitant]
     Active Substance: ENOXAPARIN SODIUM
  18. ACUPAN [Concomitant]
     Active Substance: NEFOPAM HYDROCHLORIDE

REACTIONS (1)
  - Electrocardiogram QT prolonged [Recovered/Resolved]

NARRATIVE: CASE EVENT DATE: 20190620
